FAERS Safety Report 8573431 (Version 5)
Quarter: 2012Q4

REPORT INFORMATION
  Report Type: 
  Country: US (occurrence: US)
  Receive Date: 20120522
  Receipt Date: 20121101
  Transmission Date: 20130627
  Serious: Yes (Hospitalization, Other)
  Sender: FDA-Public Use
  Company Number: US-JNJFOC-20120510498

PATIENT
  Age: 69 None
  Sex: Female
  Weight: 87.09 kg

DRUGS (40)
  1. REMICADE [Suspect]
     Indication: RHEUMATOID ARTHRITIS
     Route: 042
     Dates: start: 20111116
  2. REMICADE [Suspect]
     Indication: RHEUMATOID ARTHRITIS
     Dosage: 3rd infusion
     Route: 042
     Dates: start: 20111228, end: 20111228
  3. REMICADE [Suspect]
     Indication: ARTHRITIS
     Route: 042
     Dates: start: 20111116
  4. REMICADE [Suspect]
     Indication: ARTHRITIS
     Dosage: 3rd infusion
     Route: 042
     Dates: start: 20111228, end: 20111228
  5. REMICADE [Suspect]
     Indication: CROHN^S DISEASE
     Dosage: 3rd infusion
     Route: 042
     Dates: start: 20111228, end: 20111228
  6. REMICADE [Suspect]
     Indication: CROHN^S DISEASE
     Route: 042
     Dates: start: 20111116
  7. UNSPECIFIED INGREDIENT [Suspect]
     Indication: PAIN
     Route: 048
     Dates: start: 20111228
  8. DIAZEPAM [Concomitant]
     Indication: ANXIETY
     Route: 048
  9. DIAZEPAM [Concomitant]
     Indication: ANXIETY
     Route: 048
  10. DIAZEPAM [Concomitant]
     Indication: ANXIETY
     Route: 048
  11. SIMVASTATIN [Concomitant]
     Indication: BLOOD CHOLESTEROL
     Route: 048
  12. SIMVASTATIN [Concomitant]
     Indication: BLOOD PRESSURE
     Route: 048
  13. ZOLPIDEM [Concomitant]
     Indication: SLEEP DISORDER
     Route: 048
  14. PROMETHAZINE [Concomitant]
     Indication: NAUSEA
     Route: 048
  15. PROMETHAZINE [Concomitant]
     Indication: NAUSEA
     Route: 048
  16. ADVAIR [Concomitant]
     Indication: ASTHMA
     Dosage: 500/50/solution/once a day/inhalation
     Route: 055
  17. TUSSIONEX [Concomitant]
     Indication: PRODUCT USED FOR UNKNOWN INDICATION
     Route: 048
  18. NITROFURANTOIN [Concomitant]
     Indication: PRODUCT USED FOR UNKNOWN INDICATION
     Route: 048
  19. OMEPRAZOLE [Concomitant]
     Indication: GASTROOESOPHAGEAL REFLUX DISEASE
     Route: 048
  20. MIRALAX [Concomitant]
     Indication: ABNORMAL FAECES
     Dosage: 1 tsb/powder once a day
     Route: 048
  21. POTASSIUM GLUCONATE [Concomitant]
     Route: 048
  22. TUMS [Concomitant]
     Indication: GASTROOESOPHAGEAL REFLUX DISEASE
     Route: 048
  23. CYMBALTA [Concomitant]
     Indication: ARTHRITIS
     Route: 048
     Dates: start: 201109
  24. LORATADINE [Concomitant]
     Indication: MULTIPLE ALLERGIES
     Route: 048
  25. ALL OTHER THERAPEUTIC PRODUCTS [Concomitant]
     Indication: ABNORMAL FAECES
     Route: 048
  26. BUTALBITAL [Concomitant]
     Indication: MIGRAINE
     Route: 048
  27. TYLENOL 3 WITH CODEINE [Concomitant]
     Indication: MIGRAINE
     Route: 048
  28. OXYCONTIN [Concomitant]
     Indication: PAIN
     Dosage: 1 ^ea^ 4 to 6 hours
     Route: 048
  29. IPRATROPIUM [Concomitant]
     Indication: ASTHMA
     Dosage: 2 to 3 per day
     Route: 055
  30. ALBUTEROL [Concomitant]
     Indication: ASTHMA
     Route: 055
  31. ALBUTEROL [Concomitant]
     Indication: ASTHMA
     Dosage: 2 to 3 puffs every 3 to 4 hours as needed
     Route: 055
  32. GUAIFENESIN [Concomitant]
     Indication: ASTHMA
     Dosage: 1 at morning and 1 at night
     Route: 048
  33. ZOLOFT [Concomitant]
     Indication: HYPERSOMNIA
     Route: 048
  34. PREDNISONE [Concomitant]
     Route: 048
  35. DIPHENOXYLATE [Concomitant]
     Route: 048
  36. ATROPINE [Concomitant]
     Route: 048
  37. MIRALAX [Concomitant]
     Indication: ABNORMAL FAECES
     Route: 048
  38. FOLIC ACID [Concomitant]
     Indication: ARTHRITIS
     Dosage: 2 tablets every day except Thursday
     Route: 048
  39. METHOTREXATE [Concomitant]
     Dosage: 6 on Thurs day only
     Route: 048
  40. ZYFLAMEND [Concomitant]
     Route: 065

REACTIONS (32)
  - Chest pain [Unknown]
  - Depression [Not Recovered/Not Resolved]
  - Tuberculosis [Not Recovered/Not Resolved]
  - Arthritis [Not Recovered/Not Resolved]
  - Fall [Not Recovered/Not Resolved]
  - Oedema peripheral [Not Recovered/Not Resolved]
  - Dyspnoea [Unknown]
  - Mood swings [Not Recovered/Not Resolved]
  - General physical health deterioration [Not Recovered/Not Resolved]
  - Body height decreased [Not Recovered/Not Resolved]
  - Amnesia [Recovered/Resolved]
  - Hypothyroidism [Not Recovered/Not Resolved]
  - Mood altered [Unknown]
  - Periorbital contusion [Unknown]
  - Back pain [Not Recovered/Not Resolved]
  - Chronic obstructive pulmonary disease [Unknown]
  - Decreased appetite [Not Recovered/Not Resolved]
  - Herpes zoster [Unknown]
  - Weight decreased [Not Recovered/Not Resolved]
  - Joint swelling [Not Recovered/Not Resolved]
  - Stress [Not Recovered/Not Resolved]
  - Feeling abnormal [Not Recovered/Not Resolved]
  - Pain [Not Recovered/Not Resolved]
  - Gait disturbance [Not Recovered/Not Resolved]
  - Hyperhidrosis [Not Recovered/Not Resolved]
  - Migraine [Not Recovered/Not Resolved]
  - Arthralgia [Not Recovered/Not Resolved]
  - Increased tendency to bruise [Not Recovered/Not Resolved]
  - Dysarthria [Not Recovered/Not Resolved]
  - Dizziness [Not Recovered/Not Resolved]
  - Dry mouth [Not Recovered/Not Resolved]
  - Infusion related reaction [Recovered/Resolved]
